FAERS Safety Report 10264828 (Version 1)
Quarter: 2014Q2

REPORT INFORMATION
  Report Type: Spontaneous
  Country: GB (occurrence: None)
  Receive Date: 20140624
  Receipt Date: 20140624
  Transmission Date: 20141212
  Serious: Yes (Other)
  Sender: FDA-Public Use
  Company Number: AUR-APL-2014-06550

PATIENT
  Age: 51 Year
  Sex: Female

DRUGS (1)
  1. SERTRALINE [Suspect]
     Indication: ANXIETY
     Route: 048
     Dates: start: 20130921, end: 20130924

REACTIONS (7)
  - Aphasia [None]
  - Movement disorder [None]
  - Drug ineffective [None]
  - Catatonia [None]
  - Depressed mood [None]
  - Completed suicide [None]
  - Asphyxia [None]
